FAERS Safety Report 4721677-7 (Version None)
Quarter: 2005Q3

REPORT INFORMATION
  Report Type: 
  Country: None (occurrence: None)
  Receive Date: 20050721
  Receipt Date: 20050217
  Transmission Date: 20060218
  Serious: No
  Sender: FDA-Public Use
  Company Number: US-BRISTOL-MYERS SQUIBB COMPANY-12867305

PATIENT
  Age: 74 Year
  Sex: Male
  Weight: 94 kg

DRUGS (4)
  1. COUMADIN [Suspect]
     Indication: PROPHYLAXIS
  2. HUMULIN 70/30 [Concomitant]
     Dosage: 15 UNITS IN A.M. AND 18 UNITS IN P.M.
  3. TETRACYCLINE [Concomitant]
  4. HEPARIN [Concomitant]
     Indication: PROPHYLAXIS

REACTIONS (1)
  - CONTUSION [None]
